FAERS Safety Report 6840907-9 (Version None)
Quarter: 2010Q3

REPORT INFORMATION
  Report Type: 
  Country: None (occurrence: None)
  Receive Date: 20100714
  Receipt Date: 20100702
  Transmission Date: 20110219
  Serious: Yes (Hospitalization)
  Sender: FDA-Public Use
  Company Number: FR-GENENTECH-303910

PATIENT
  Age: 37 Year
  Sex: Female
  Weight: 58 kg

DRUGS (9)
  1. MABTHERA [Suspect]
     Indication: DERMATOMYOSITIS
     Dosage: 1000 MG, UNK
     Route: 042
     Dates: start: 20100301, end: 20100317
  2. TEGELINE [Suspect]
     Indication: DERMATOMYOSITIS
     Dosage: 140 G, UNK
     Route: 042
     Dates: start: 20090701
  3. TEGELINE [Suspect]
     Dosage: 35 G, UNK
     Route: 042
     Dates: start: 20100601, end: 20100604
  4. METHOTREXATE [Concomitant]
     Indication: DERMATOMYOSITIS
     Dosage: 15 MG, UNK
     Route: 048
     Dates: start: 20090827
  5. CORTANCYL [Concomitant]
     Indication: DERMATOMYOSITIS
     Dosage: UNK
     Route: 048
  6. DOLIPRANE [Concomitant]
     Indication: PRODUCT USED FOR UNKNOWN INDICATION
     Dosage: UNK
     Route: 048
  7. CACIT D3 [Concomitant]
     Indication: PRODUCT USED FOR UNKNOWN INDICATION
     Dosage: 1 DF, UNK
     Route: 048
  8. SPECIAFOLDINE [Concomitant]
     Indication: PRODUCT USED FOR UNKNOWN INDICATION
     Dosage: 10 MG, UNK
     Route: 048
     Dates: start: 20090801
  9. DIFFU K [Concomitant]
     Indication: PRODUCT USED FOR UNKNOWN INDICATION
     Dosage: 600 MG, UNK
     Route: 048

REACTIONS (2)
  - DISEASE PROGRESSION [None]
  - NEUTROPENIA [None]
